FAERS Safety Report 8491926 (Version 4)
Quarter: 2012Q4

REPORT INFORMATION
  Report Type: Report from Study
  Country: BE (occurrence: BE)
  Receive Date: 20120403
  Receipt Date: 20121107
  Transmission Date: 20130627
  Serious: Yes (Death, Other)
  Sender: FDA-Public Use
  Company Number: BE-CELGENEUS-013-C5013-11064001

PATIENT
  Age: 78 Year
  Sex: Male
  Weight: 75 kg

DRUGS (12)
  1. CC-5013 [Suspect]
     Indication: MDS
     Dosage: 5 Milligram
     Route: 048
     Dates: start: 20110329, end: 20110425
  2. CC-5013 [Suspect]
     Dosage: 5 Milligram
     Route: 048
     Dates: end: 20110607
  3. VISKALDIX [Concomitant]
     Indication: PROPHYLAXIS
     Dosage: 10 Milligram
     Route: 048
     Dates: start: 1971
  4. PREDNISOLONE [Concomitant]
     Indication: PAIN
     Dosage: 10 Milligram
     Route: 048
     Dates: start: 200803
  5. DUROGESIC [Concomitant]
     Indication: PAIN
     Dosage: 2400 Microgram
     Route: 062
     Dates: start: 20110304
  6. ALLOPURINOL [Concomitant]
     Indication: PROPHYLAXIS
     Dosage: 300 Milligram
     Route: 048
     Dates: start: 201003
  7. LEVOCETIRIZINE [Concomitant]
     Indication: SKIN RASH
     Dosage: 5 Milligram
     Route: 048
     Dates: start: 20110419, end: 20110425
  8. LEVOCETIRIZINE [Concomitant]
     Indication: PRURITUS
  9. ATOPICALM [Concomitant]
     Indication: SKIN RASH
     Dosage: 250 Milligram/Milliliters
     Route: 062
     Dates: start: 20110426
  10. ATOPICALM [Concomitant]
     Indication: PRURITUS
  11. CORTISONE [Concomitant]
     Indication: SKIN RASH
     Dosage: 30 Milligram/Milliliters
     Route: 062
     Dates: start: 20110426
  12. CORTISONE [Concomitant]
     Indication: PRURITUS

REACTIONS (2)
  - Lung squamous cell carcinoma metastatic [Not Recovered/Not Resolved]
  - Acute respiratory distress syndrome [Fatal]
